FAERS Safety Report 16613919 (Version 1)
Quarter: 2019Q3

REPORT INFORMATION
  Report Type: Other
  Country: DE (occurrence: DE)
  Receive Date: 20190723
  Receipt Date: 20190723
  Transmission Date: 20191004
  Serious: Yes (Hospitalization)
  Sender: FDA-Public Use
  Company Number: DE-GLENMARK PHARMACEUTICALS-2019GMK042218

PATIENT

DRUGS (3)
  1. MOVICOL JUNIOR NEUTRAL [Concomitant]
     Indication: CONSTIPATION
     Dosage: 2 DF, QD (DAILY DOSE: 2 DOSAGE FORM EVERY DAYS 2 SEPARATED DOSES)
     Route: 048
     Dates: start: 20190222
  2. TOPIRAMATE. [Suspect]
     Active Substance: TOPIRAMATE
     Indication: EPILEPSY
     Dosage: 187.5 MG, QD; 87.5-0-100 MG
     Route: 048
     Dates: start: 20190131, end: 20190502
  3. OXCARBAZEPIN [Concomitant]
     Active Substance: OXCARBAZEPINE
     Indication: EPILEPSY
     Dosage: 900 MG, QD (EVERY DAYS 2 SEPERATED DOSES)
     Route: 048
     Dates: start: 20110928

REACTIONS (2)
  - Metabolic acidosis [Recovered/Resolved]
  - Vomiting [Recovered/Resolved]

NARRATIVE: CASE EVENT DATE: 20190502
